FAERS Safety Report 6753461-7 (Version None)
Quarter: 2010Q2

REPORT INFORMATION
  Report Type: 
  Country: None (occurrence: None)
  Receive Date: 20100603
  Receipt Date: 20100519
  Transmission Date: 20101027
  Serious: Yes (Death)
  Sender: FDA-Public Use
  Company Number: PHHY2010US25219

PATIENT
  Sex: Female

DRUGS (4)
  1. EXJADE [Suspect]
     Indication: MYELODYSPLASTIC SYNDROME
     Dosage: 1500 MG DAILY
     Route: 048
  2. REVLIMID [Concomitant]
     Indication: MYELODYSPLASTIC SYNDROME
     Dosage: 5 MG, DAILY
     Route: 048
     Dates: start: 20100312, end: 20100330
  3. PRILOSEC [Concomitant]
     Indication: DYSPEPSIA
     Dosage: 20 MG, DAILY
     Route: 048
     Dates: start: 20081001
  4. MAXIDEX [Concomitant]
     Indication: HYPOTHYROIDISM
     Dosage: 400 MG DAILY
     Route: 048
     Dates: start: 20091201

REACTIONS (3)
  - DEATH [None]
  - ORAL PAIN [None]
  - RASH [None]
